FAERS Safety Report 9538359 (Version 2)
Quarter: 2013Q4

REPORT INFORMATION
  Report Type: Spontaneous
  Country: DE (occurrence: DE)
  Receive Date: 20130920
  Receipt Date: 20131009
  Transmission Date: 20140711
  Serious: Yes (Life-Threatening, Hospitalization, Disabling, Other)
  Sender: FDA-Public Use
  Company Number: DE-JNJFOC-20130908655

PATIENT
  Age: 75 Year
  Sex: Male
  Weight: 76 kg

DRUGS (21)
  1. XARELTO [Suspect]
     Indication: CEREBROVASCULAR ACCIDENT PROPHYLAXIS
     Route: 048
  2. XARELTO [Suspect]
     Indication: CEREBROVASCULAR ACCIDENT PROPHYLAXIS
     Route: 048
     Dates: start: 20130624
  3. XARELTO [Suspect]
     Indication: TRANSIENT ISCHAEMIC ATTACK
     Route: 048
  4. XARELTO [Suspect]
     Indication: TRANSIENT ISCHAEMIC ATTACK
     Route: 048
     Dates: start: 20130624
  5. XARELTO [Suspect]
     Indication: ATRIAL FIBRILLATION
     Route: 048
     Dates: start: 20130624
  6. XARELTO [Suspect]
     Indication: ATRIAL FIBRILLATION
     Route: 048
  7. SIMVASTATIN [Concomitant]
     Route: 065
  8. RAMIPRIL [Concomitant]
     Route: 065
  9. OMEPRAZOLE [Concomitant]
     Route: 065
  10. GLIBEN HEXAL [Concomitant]
     Route: 065
  11. CALCIUM + D3 [Concomitant]
     Route: 065
  12. AMLODIPINE [Concomitant]
     Route: 065
  13. BISOPROLOL [Concomitant]
     Route: 065
  14. PENTALONG [Concomitant]
     Route: 065
  15. BEROTEC [Concomitant]
     Route: 065
  16. HCT [Concomitant]
     Route: 065
  17. SYMBICORT [Concomitant]
     Dosage: 2 PUFF(S)
     Route: 065
  18. BERLINSULIN H NORMAL [Concomitant]
     Route: 065
  19. MOLSIDOMIN [Concomitant]
     Route: 065
  20. SPIRIVA [Concomitant]
     Route: 065
  21. PREDNISOLON [Concomitant]
     Indication: DYSPNOEA
     Route: 065

REACTIONS (3)
  - Splenic haemorrhage [Recovered/Resolved]
  - Haemorrhagic anaemia [Recovering/Resolving]
  - Splenic rupture [Recovered/Resolved]
